FAERS Safety Report 8533409-5 (Version None)
Quarter: 2012Q3

REPORT INFORMATION
  Report Type: 
  Country: None (occurrence: None)
  Receive Date: 20120724
  Receipt Date: 20120718
  Transmission Date: 20120928
  Serious: Yes (Hospitalization)
  Sender: FDA-Public Use
  Company Number: PHHY2012DE059915

PATIENT
  Age: 13 Year
  Sex: Female

DRUGS (5)
  1. CELLCEPT [Concomitant]
     Indication: GLOMERULONEPHRITIS MEMBRANOPROLIFERATIVE
     Dates: end: 20120702
  2. SANDIMMUNE [Suspect]
     Indication: GLOMERULONEPHRITIS MEMBRANOPROLIFERATIVE
     Dosage: 5 MG/KG, PER DAY
     Route: 048
     Dates: end: 20120701
  3. SANDIMMUNE [Suspect]
     Dosage: 3 MG/KG, PER DAY
     Route: 048
     Dates: end: 20120706
  4. IMMUNE GLOBULIN NOS [Concomitant]
     Indication: GLOMERULONEPHRITIS MEMBRANOPROLIFERATIVE
  5. PREDNISONE [Concomitant]
     Indication: GLOMERULONEPHRITIS MEMBRANOPROLIFERATIVE
     Dosage: 80 MG/M2, UNK
     Dates: start: 20120701

REACTIONS (9)
  - POSTERIOR REVERSIBLE ENCEPHALOPATHY SYNDROME [None]
  - PSYCHOTIC DISORDER [None]
  - MALIGNANT HYPERTENSION [None]
  - PROTEINURIA [None]
  - ANTITHROMBIN III INCREASED [None]
  - GRAND MAL CONVULSION [None]
  - IMMUNOSUPPRESSANT DRUG LEVEL INCREASED [None]
  - VISUAL IMPAIRMENT [None]
  - BLOOD TRIGLYCERIDES INCREASED [None]
